FAERS Safety Report 5268466-5 (Version None)
Quarter: 2007Q1

REPORT INFORMATION
  Report Type: 
  Country: None (occurrence: None)
  Receive Date: 20070319
  Receipt Date: 20070305
  Transmission Date: 20070707
  Serious: Yes (Other)
  Sender: FDA-Public Use
  Company Number: PHBS2007JP03505

PATIENT
  Age: 30 Year
  Sex: Female

DRUGS (3)
  1. CYCLOSPORINE [Suspect]
     Indication: STEM CELL TRANSPLANT
     Route: 065
  2. CYCLOPHOSPHAMIDE [Suspect]
     Indication: STEM CELL TRANSPLANT
     Route: 065
  3. IRRADIATION [Suspect]
     Indication: STEM CELL TRANSPLANT

REACTIONS (6)
  - BRAIN NATRIURETIC PEPTIDE INCREASED [None]
  - CAPILLARY PERMEABILITY INCREASED [None]
  - CHEST DISCOMFORT [None]
  - CHEST PAIN [None]
  - IMMUNOSUPPRESSANT DRUG LEVEL INCREASED [None]
  - PLEURAL EFFUSION [None]
